FAERS Safety Report 6790814-5 (Version None)
Quarter: 2010Q2

REPORT INFORMATION
  Report Type: 
  Country: None (occurrence: None)
  Receive Date: 20100624
  Receipt Date: 20100610
  Transmission Date: 20101027
  Serious: Yes (Other)
  Sender: FDA-Public Use
  Company Number: US-ELI_LILLY_AND_COMPANY-US201006002951

PATIENT
  Sex: Male

DRUGS (2)
  1. CYMBALTA [Suspect]
  2. ABILIFY [Concomitant]

REACTIONS (1)
  - HOMICIDE [None]
